FAERS Safety Report 4950184-1 (Version None)
Quarter: 2006Q1

REPORT INFORMATION
  Report Type: 
  Country: None (occurrence: None)
  Receive Date: 20060316
  Receipt Date: 20060310
  Transmission Date: 20060701
  Serious: Yes (Disabling)
  Sender: FDA-Public Use
  Company Number: 06-NIP00027

PATIENT
  Age: 48 Year
  Sex: Female

DRUGS (1)
  1. NIPENT [Suspect]
     Indication: HAIRY CELL LEUKAEMIA
     Dosage: 0.6667 MG (20 MG, ONCE MONTHLY), INTRAVENOUS
     Route: 042
     Dates: start: 19980914, end: 19990402

REACTIONS (5)
  - ANXIETY [None]
  - ASTHENIA [None]
  - DEMENTIA ALZHEIMER'S TYPE [None]
  - DEPRESSION [None]
  - MUSCLE SPASMS [None]
